FAERS Safety Report 7079354-6 (Version None)
Quarter: 2010Q4

REPORT INFORMATION
  Report Type: 
  Country: None (occurrence: None)
  Receive Date: 20101102
  Receipt Date: 20101028
  Transmission Date: 20110411
  Serious: Yes (Life-Threatening, Hospitalization)
  Sender: FDA-Public Use
  Company Number: US-BAYER-201027054NA

PATIENT
  Age: 74 Year
  Sex: Female
  Weight: 62 kg

DRUGS (6)
  1. AVELOX [Suspect]
     Indication: OTITIS MEDIA CHRONIC
     Route: 048
     Dates: start: 20100512, end: 20100519
  2. OMNARIS [Concomitant]
     Dates: start: 20100512
  3. METFORMIN [Concomitant]
  4. LISINOPRIL [Concomitant]
  5. GLYPURIDE [Concomitant]
  6. METOPROLOL [Concomitant]

REACTIONS (2)
  - COUGH [None]
  - MYOCARDIAL INFARCTION [None]
